FAERS Safety Report 5647135-3 (Version None)
Quarter: 2008Q1

REPORT INFORMATION
  Report Type: 
  Country: None (occurrence: None)
  Receive Date: 20080228
  Receipt Date: 20080228
  Transmission Date: 20080703
  Serious: Yes (Hospitalization)
  Sender: FDA-Public Use
  Company Number: None

PATIENT
  Sex: Female
  Weight: 75.75 kg

DRUGS (8)
  1. PACLITAXEL [Suspect]
     Dosage: 192 MG
  2. CELECOXIB [Concomitant]
  3. CELEXA [Concomitant]
  4. CLIMARA [Concomitant]
  5. DIAZEPAM [Concomitant]
  6. MARINOL [Concomitant]
  7. MORPHINE [Concomitant]
  8. ZOFRAN [Concomitant]

REACTIONS (13)
  - ABDOMINAL PAIN LOWER [None]
  - ABDOMINAL PAIN UPPER [None]
  - ABNORMAL FAECES [None]
  - ASTHENIA [None]
  - BACK PAIN [None]
  - BODY TEMPERATURE INCREASED [None]
  - CARBOHYDRATE ANTIGEN 125 INCREASED [None]
  - DEHYDRATION [None]
  - FAECES DISCOLOURED [None]
  - FLATULENCE [None]
  - NAUSEA [None]
  - ORAL INTAKE REDUCED [None]
  - VOMITING [None]
